FAERS Safety Report 8012219-1 (Version None)
Quarter: 2011Q4

REPORT INFORMATION
  Report Type: 
  Country: None (occurrence: None)
  Receive Date: 20111228
  Receipt Date: 20111219
  Transmission Date: 20120403
  Serious: Yes (Hospitalization)
  Sender: FDA-Public Use
  Company Number: US-ASTRAZENECA-2011SE77406

PATIENT
  Sex: Female

DRUGS (3)
  1. LORAZEPAM [Suspect]
     Route: 065
     Dates: end: 20110301
  2. SEROQUEL [Suspect]
     Route: 048
     Dates: end: 20110301
  3. CITALOPRAM HYDROBROMIDE [Suspect]
     Route: 065
     Dates: end: 20110301

REACTIONS (1)
  - EMOTIONAL POVERTY [None]
